FAERS Safety Report 22271980 (Version 2)
Quarter: 2023Q2

REPORT INFORMATION
  Report Type: Spontaneous
  Country: NZ (occurrence: NZ)
  Receive Date: 20230502
  Receipt Date: 20230525
  Transmission Date: 20230721
  Serious: Yes (Life-Threatening, Hospitalization, Other)
  Sender: FDA-Public Use
  Company Number: NZ-BEH-2023157821

PATIENT
  Age: 53 Year
  Sex: Male
  Weight: 142 kg

DRUGS (18)
  1. PRIVIGEN [Suspect]
     Active Substance: HUMAN IMMUNOGLOBULIN G
     Indication: Thrombocytopenia
     Dosage: 101 GRAM
     Route: 042
     Dates: start: 20230414, end: 20230415
  2. PRIVIGEN [Suspect]
     Active Substance: HUMAN IMMUNOGLOBULIN G
     Dosage: UNK
     Route: 042
     Dates: start: 20230414
  3. PRIVIGEN [Suspect]
     Active Substance: HUMAN IMMUNOGLOBULIN G
     Dosage: 101 GRAM
     Route: 042
     Dates: start: 20230415, end: 20230415
  4. PRIVIGEN [Suspect]
     Active Substance: HUMAN IMMUNOGLOBULIN G
     Dosage: UNK
     Route: 042
     Dates: start: 20230415
  5. PRIVIGEN [Suspect]
     Active Substance: HUMAN IMMUNOGLOBULIN G
     Dosage: UNK
     Route: 042
     Dates: start: 20230414
  6. PLATELETS [Concomitant]
     Active Substance: HUMAN PLATELET, ALLOGENIC
     Dosage: 1 INTERNATIONAL UNIT
     Route: 042
     Dates: start: 20230414
  7. PLATELETS [Concomitant]
     Active Substance: HUMAN PLATELET, ALLOGENIC
     Dosage: 1 INTERNATIONAL UNIT
     Route: 042
     Dates: start: 20230416
  8. RIFAXIMIN [Concomitant]
     Active Substance: RIFAXIMIN
     Dosage: 1.1 GRAM
     Route: 048
     Dates: end: 20230417
  9. SODIUM BICARBONATE [Concomitant]
     Active Substance: SODIUM BICARBONATE
     Dosage: 1.68 GRAM
     Route: 048
     Dates: start: 20230414, end: 20230417
  10. ALLOPURINOL [Concomitant]
     Active Substance: ALLOPURINOL
     Dosage: 100 MILLIGRAM
     Route: 048
     Dates: end: 20230417
  11. DOXAZOSIN [Concomitant]
     Active Substance: DOXAZOSIN MESYLATE
     Dosage: 1 MILLIGRAM
     Route: 048
     Dates: end: 20230417
  12. PERINDOPRIL [Concomitant]
     Active Substance: PERINDOPRIL
     Dosage: 2 MILLIGRAM
     Route: 048
     Dates: end: 20230417
  13. SPIRONOLACTONE [Concomitant]
     Active Substance: SPIRONOLACTONE
     Dosage: 150 MILLIGRAM
     Route: 048
     Dates: end: 20230417
  14. CALCIUM RESONIUM [Concomitant]
     Dosage: 60 MILLIGRAM
     Route: 048
     Dates: start: 20230416, end: 20230417
  15. LACTULOSE [Concomitant]
     Active Substance: LACTULOSE
     Dosage: 60 MILLILITER
     Route: 048
  16. INSULIN NOS [Concomitant]
     Active Substance: INSULIN NOS
     Indication: Type 2 diabetes mellitus
  17. EMPAGLIFLOZIN [Concomitant]
     Active Substance: EMPAGLIFLOZIN
     Indication: Type 2 diabetes mellitus
  18. EMPAGLIFLOZIN [Concomitant]
     Active Substance: EMPAGLIFLOZIN
     Indication: Type 2 diabetes mellitus

REACTIONS (13)
  - Acute kidney injury [Recovering/Resolving]
  - Incorrect drug administration rate [Recovering/Resolving]
  - Prescribed overdose [Recovering/Resolving]
  - Drug ineffective for unapproved indication [Unknown]
  - Incorrect drug administration rate [Unknown]
  - Prescribed overdose [Unknown]
  - No adverse event [Unknown]
  - Off label use [Unknown]
  - Oliguria [Recovering/Resolving]
  - Hyperkalaemia [Recovering/Resolving]
  - Pyrexia [Unknown]
  - Serratia infection [Unknown]
  - Device related sepsis [Unknown]

NARRATIVE: CASE EVENT DATE: 20230416
